FAERS Safety Report 25635867 (Version 1)
Quarter: 2025Q3

REPORT INFORMATION
  Report Type: Spontaneous
  Country: US (occurrence: US)
  Receive Date: 20250802
  Receipt Date: 20250802
  Transmission Date: 20251020
  Serious: Yes (Other)
  Sender: AUROBINDO
  Company Number: US-AUROBINDO-AUR-APL-2025-039404

PATIENT
  Age: 18 Year
  Sex: Male

DRUGS (7)
  1. PREDNISONE [Suspect]
     Active Substance: PREDNISONE
     Indication: Sinusitis
     Route: 065
     Dates: start: 202406
  2. AMOXICILLIN\CLAVULANIC ACID [Suspect]
     Active Substance: AMOXICILLIN\CLAVULANIC ACID
     Indication: Sinusitis
     Route: 065
     Dates: start: 202406
  3. DOXYCYCLINE [Suspect]
     Active Substance: DOXYCYCLINE
     Indication: Sinusitis
     Route: 065
     Dates: start: 202403
  4. DOXYCYCLINE [Suspect]
     Active Substance: DOXYCYCLINE
     Route: 065
     Dates: start: 202406
  5. ELEXACAFTOR\IVACAFTOR\TEZACAFTOR [Suspect]
     Active Substance: ELEXACAFTOR\IVACAFTOR\TEZACAFTOR
     Indication: Sinusitis
     Route: 065
  6. TOBRAMYCIN [Concomitant]
     Active Substance: TOBRAMYCIN
     Indication: Sinusitis
     Route: 065
     Dates: start: 202306
  7. DUPILUMAB [Concomitant]
     Active Substance: DUPILUMAB
     Indication: Sinusitis
     Route: 065

REACTIONS (1)
  - Drug ineffective [Unknown]
